FAERS Safety Report 15636998 (Version 4)
Quarter: 2019Q1

REPORT INFORMATION
  Report Type: Spontaneous
  Country: US (occurrence: US)
  Receive Date: 20181120
  Receipt Date: 20190205
  Transmission Date: 20190417
  Serious: Yes (Hospitalization, Other)
  Sender: FDA-Public Use
  Company Number: US-SA-2018SA317015

PATIENT
  Age: 58 Year
  Sex: Male
  Weight: 61.2 kg

DRUGS (29)
  1. METHOTREXATE. [Concomitant]
     Active Substance: METHOTREXATE
     Dosage: 6 DF, QW
     Route: 048
     Dates: start: 20170125
  2. VITAMIN B12 [VITAMIN B12 NOS] [Concomitant]
     Active Substance: CYANOCOBALAMIN
     Dosage: 250MCG QD
     Route: 048
     Dates: start: 20170125
  3. HEPARIN [Concomitant]
     Active Substance: HEPARIN SODIUM
     Dosage: 100 ML
     Route: 042
     Dates: start: 20180213
  4. PREDNISONE. [Concomitant]
     Active Substance: PREDNISONE
     Indication: PREMEDICATION
     Dosage: 80 MG
     Route: 048
     Dates: start: 20170210
  5. CLARITINE [Concomitant]
     Active Substance: LORATADINE
     Indication: PREMEDICATION
     Dosage: 10 MG
     Route: 048
     Dates: start: 20170210
  6. TYLENOL [Concomitant]
     Active Substance: ACETAMINOPHEN
     Indication: PREMEDICATION
     Dosage: 1 DF, QD
     Route: 048
     Dates: start: 20170210
  7. STERILE WATER [Concomitant]
     Active Substance: WATER
     Dosage: 1 AS DIRECTED
     Route: 042
     Dates: start: 20180213
  8. NORMAL SALINE [Concomitant]
     Active Substance: SODIUM CHLORIDE
     Dosage: 0.9 %
     Route: 042
     Dates: start: 20180213
  9. ASPIRIN [ACETYLSALICYLIC ACID] [Concomitant]
     Active Substance: ASPIRIN
     Dosage: 1 UNK, BID
     Route: 048
     Dates: start: 20170210
  10. METHOTREXATE. [Concomitant]
     Active Substance: METHOTREXATE
     Dosage: 13 MG, QW
     Route: 048
     Dates: start: 20170125
  11. FABRAZYME [Suspect]
     Active Substance: AGALSIDASE BETA
     Indication: FABRY^S DISEASE
     Dosage: 1.14 MG/KG, QOW
     Route: 041
     Dates: start: 20170126
  12. CETRIZINE [Concomitant]
     Active Substance: CETIRIZINE HYDROCHLORIDE
     Dosage: 10 MG, QD
     Route: 048
     Dates: start: 20180404
  13. VITAMIN E [Concomitant]
     Active Substance: .ALPHA.-TOCOPHEROL
     Dosage: 400 UNITS QD
     Route: 048
     Dates: start: 20170210
  14. ACETAMINOPHEN. [Concomitant]
     Active Substance: ACETAMINOPHEN
     Indication: PREMEDICATION
     Dosage: 1000 MG
     Route: 048
     Dates: start: 20180213
  15. EPINEPHRINE. [Concomitant]
     Active Substance: EPINEPHRINE
     Dosage: 0.3 MG
     Route: 030
     Dates: start: 20180213
  16. METHOCARBAMOL. [Concomitant]
     Active Substance: METHOCARBAMOL
     Dosage: 750 MG, BID
     Route: 048
     Dates: start: 20170807
  17. CLARITINE [Concomitant]
     Active Substance: LORATADINE
     Dosage: 1 DF
     Route: 048
     Dates: start: 20170210
  18. IRON [Concomitant]
     Active Substance: IRON
     Dosage: 1 DF, QD
     Route: 048
     Dates: start: 20170210
  19. FOLIC ACID. [Concomitant]
     Active Substance: FOLIC ACID
     Dosage: 1 MG, QD
     Route: 048
  20. DIPHENHYDRAMINE. [Concomitant]
     Active Substance: DIPHENHYDRAMINE
     Indication: ANAPHYLACTIC REACTION
     Dosage: 50 MG
     Route: 042
     Dates: start: 20180213
  21. SODIUM CHLORIDE. [Concomitant]
     Active Substance: SODIUM CHLORIDE
     Dosage: 0.9%
     Route: 042
     Dates: start: 20180213
  22. ASPIRIN [ACETYLSALICYLIC ACID] [Concomitant]
     Active Substance: ASPIRIN
     Dosage: 81 MG, BID
     Route: 048
     Dates: start: 20170210
  23. FOLIC ACID. [Concomitant]
     Active Substance: FOLIC ACID
     Dosage: 1 DF, QD
     Route: 048
     Dates: start: 20170125
  24. MUCINEX D [Concomitant]
     Active Substance: GUAIFENESIN\PSEUDOEPHEDRINE HYDROCHLORIDE
     Dosage: 600 MG, QD
     Route: 048
     Dates: start: 20190115
  25. TRAMADOL. [Concomitant]
     Active Substance: TRAMADOL
     Dosage: 50 MG, PRN (EVERY 4-8 HOURS AS NEEDED)
     Route: 048
     Dates: start: 20180404
  26. PREDNISONE. [Concomitant]
     Active Substance: PREDNISONE
     Dosage: 3 DF
     Route: 048
     Dates: start: 20170210
  27. GABAPENTIN. [Concomitant]
     Active Substance: GABAPENTIN
     Dosage: 300 MG, QD
     Route: 048
     Dates: start: 20170210
  28. GABAPENTIN. [Concomitant]
     Active Substance: GABAPENTIN
     Dosage: 1 DF, QD
     Route: 048
     Dates: start: 20170210
  29. IRON [Concomitant]
     Active Substance: IRON
     Dosage: 65 MG, QD
     Route: 048

REACTIONS (8)
  - Dizziness [Unknown]
  - Upper respiratory tract infection [Unknown]
  - Chills [Unknown]
  - Pain in extremity [Unknown]
  - Cat scratch disease [Unknown]
  - Pyrexia [Unknown]
  - Ear infection [Unknown]
  - Transient ischaemic attack [Not Recovered/Not Resolved]

NARRATIVE: CASE EVENT DATE: 201811
